FAERS Safety Report 9224326 (Version 1)
Quarter: 2013Q2

REPORT INFORMATION
  Report Type: Spontaneous
  Country: MX (occurrence: MX)
  Receive Date: 20130411
  Receipt Date: 20130411
  Transmission Date: 20140414
  Serious: Yes (Other)
  Sender: FDA-Public Use
  Company Number: PHHY2013MX034579

PATIENT
  Age: 61 Year
  Sex: Female

DRUGS (3)
  1. ACLASTA [Suspect]
     Indication: OSTEOPOROSIS
     Dosage: 5 MG, ANNUAL
     Route: 042
     Dates: start: 201202
  2. BI EUGLUCON M [Concomitant]
     Dosage: 2 DF, UNK
     Dates: start: 200301
  3. ENALAPRIL [Concomitant]
     Dosage: UNK
     Dates: start: 201201

REACTIONS (2)
  - Fall [Recovering/Resolving]
  - Tendon rupture [Recovering/Resolving]
